FAERS Safety Report 18266079 (Version 1)
Quarter: 2020Q3

REPORT INFORMATION
  Report Type: Spontaneous
  Country: DE (occurrence: DE)
  Receive Date: 20200915
  Receipt Date: 20200915
  Transmission Date: 20201103
  Serious: Yes (Life-Threatening, Hospitalization)
  Sender: FDA-Public Use
  Company Number: DE-SUN PHARMACEUTICAL INDUSTRIES LTD-2020RR-260768

PATIENT
  Age: 42 Year
  Sex: Female

DRUGS (1)
  1. FINGOLIMOD. [Suspect]
     Active Substance: FINGOLIMOD
     Indication: MULTIPLE SCLEROSIS
     Dosage: ()
     Route: 048

REACTIONS (1)
  - Meningitis cryptococcal [Not Recovered/Not Resolved]

NARRATIVE: CASE EVENT DATE: 202004
